FAERS Safety Report 16591469 (Version 7)
Quarter: 2024Q3

REPORT INFORMATION
  Report Type: Spontaneous
  Country: US (occurrence: US)
  Receive Date: 20190718
  Receipt Date: 20240715
  Transmission Date: 20241017
  Serious: Yes (Disabling)
  Sender: PFIZER
  Company Number: US-PFIZER INC-2019306375

PATIENT
  Age: 60 Year
  Sex: Female

DRUGS (1)
  1. XELJANZ XR [Suspect]
     Active Substance: TOFACITINIB CITRATE
     Dosage: 11 MG
     Dates: end: 20240625

REACTIONS (7)
  - Gait disturbance [Not Recovered/Not Resolved]
  - Malaise [Unknown]
  - Pain [Unknown]
  - Pain in extremity [Unknown]
  - Arthropathy [Unknown]
  - Bone disorder [Unknown]
  - Laboratory test abnormal [Unknown]

NARRATIVE: CASE EVENT DATE: 20240601
